FAERS Safety Report 12918279 (Version 2)
Quarter: 2016Q4

REPORT INFORMATION
  Report Type: Spontaneous
  Country: EG (occurrence: EG)
  Receive Date: 20161107
  Receipt Date: 20161115
  Transmission Date: 20170207
  Serious: Yes (Death, Hospitalization, Other)
  Sender: FDA-Public Use
  Company Number: EG-NOVOPROD-517318

PATIENT
  Age: 50 Year
  Sex: Male
  Weight: 72 kg

DRUGS (3)
  1. MIXTARD 30 HM PENFILL [Suspect]
     Active Substance: INSULIN HUMAN
     Indication: DIABETES MELLITUS
     Dosage: 20 DAY,6 AFTERNOON, 20 NIGHT
     Route: 058
  2. MIXTARD 30 HM PENFILL [Suspect]
     Active Substance: INSULIN HUMAN
     Dosage: UNK
     Route: 058
     Dates: end: 20151219
  3. ALBUMIN [Concomitant]
     Active Substance: ALBUMIN HUMAN
     Indication: RENAL DISORDER
     Route: 042

REACTIONS (7)
  - Ascites [Fatal]
  - Blood glucose increased [Not Recovered/Not Resolved]
  - Tooth loss [Unknown]
  - Pruritus [Unknown]
  - Hypoglycaemia [Unknown]
  - Haematemesis [Fatal]
  - Peripheral swelling [Fatal]
